FAERS Safety Report 24420557 (Version 2)
Quarter: 2024Q4

REPORT INFORMATION
  Report Type: Spontaneous
  Country: TR (occurrence: TR)
  Receive Date: 20241010
  Receipt Date: 20241023
  Transmission Date: 20250114
  Serious: Yes (Other)
  Sender: ALKEM
  Company Number: TR-ALKEM LABORATORIES LIMITED-TR-ALKEM-2024-23244

PATIENT
  Age: 14 Year
  Sex: Male

DRUGS (5)
  1. SIROLIMUS [Suspect]
     Active Substance: SIROLIMUS
     Indication: Immunoglobulin therapy
     Dosage: UNK (MIN-MAX 3-48 MONTHS)
     Route: 065
  2. MYCOPHENOLATE MOFETIL [Suspect]
     Active Substance: MYCOPHENOLATE MOFETIL
     Indication: Immunoglobulin therapy
     Dosage: UNK (MIN-MAX 3-48 MONTHS)
     Route: 065
  3. CYCLOSPORINE [Suspect]
     Active Substance: CYCLOSPORINE
     Indication: Immunoglobulin therapy
     Dosage: UNK (MIN-MAX:3-48 MONTHS)
     Route: 065
  4. METHOTREXATE [Suspect]
     Active Substance: METHOTREXATE
     Indication: Prophylaxis
     Dosage: UNK
     Route: 065
  5. PREDNISOLONE [Suspect]
     Active Substance: PREDNISOLONE
     Indication: Immunoglobulin therapy
     Dosage: UNK (MIN-MAX 3-48 MONTHS)
     Route: 065

REACTIONS (6)
  - Perthes disease [Unknown]
  - Stenotrophomonas infection [Unknown]
  - Knee deformity [Unknown]
  - Eczema [Unknown]
  - Staphylococcal infection [Unknown]
  - Skin infection [Unknown]
